FAERS Safety Report 15509799 (Version 1)
Quarter: 2018Q4

REPORT INFORMATION
  Report Type: Spontaneous
  Country: US (occurrence: US)
  Receive Date: 20181017
  Receipt Date: 20181017
  Transmission Date: 20190205
  Serious: Yes (Other)
  Sender: FDA-Public Use
  Company Number: None

PATIENT
  Age: 1 Year
  Sex: Female
  Weight: 9.9 kg

DRUGS (1)
  1. INFANTS TYLENOL [Suspect]
     Active Substance: ACETAMINOPHEN
     Indication: PYREXIA
     Dosage: ?          QUANTITY:30 TEASPOON(S);?
     Route: 048
     Dates: start: 20181016, end: 20181016

REACTIONS (2)
  - Expired product administered [None]
  - Drug ineffective [None]

NARRATIVE: CASE EVENT DATE: 20181016
